FAERS Safety Report 5992808-6 (Version None)
Quarter: 2008Q4

REPORT INFORMATION
  Report Type: 
  Country: None (occurrence: None)
  Receive Date: 20081203
  Receipt Date: 20081021
  Transmission Date: 20090506
  Serious: Yes (Other)
  Sender: FDA-Public Use
  Company Number: ZYD-AE-08-149

PATIENT
  Age: 51 Year
  Sex: Male

DRUGS (2)
  1. RIBAVIRIN [Suspect]
     Indication: HEPATITIS C
     Dosage: 1400MG - QD
     Dates: start: 20080826
  2. PEG-INTERFERON ALFA-2A 25-8310) [Suspect]
     Dosage: 180 MCG - 1XW
     Dates: start: 20080826

REACTIONS (2)
  - HEPATIC STEATOSIS [None]
  - OEDEMA PERIPHERAL [None]
